FAERS Safety Report 6585439-0 (Version None)
Quarter: 2010Q1

REPORT INFORMATION
  Report Type: 
  Country: None (occurrence: None)
  Receive Date: 20100217
  Receipt Date: 20100212
  Transmission Date: 20100710
  Serious: Yes (Hospitalization, Other)
  Sender: FDA-Public Use
  Company Number: B0633248A

PATIENT
  Sex: Male

DRUGS (1)
  1. AUGMENTIN [Suspect]
     Indication: WOUND
     Route: 048
     Dates: start: 20091213, end: 20091213

REACTIONS (8)
  - CHAPPED LIPS [None]
  - DRUG HYPERSENSITIVITY [None]
  - ERYTHEMA [None]
  - FACE OEDEMA [None]
  - IMPETIGO [None]
  - PURPURA [None]
  - RASH PUSTULAR [None]
  - SKIN DISORDER [None]
